FAERS Safety Report 6419519-7 (Version None)
Quarter: 2009Q4

REPORT INFORMATION
  Report Type: 
  Country: None (occurrence: None)
  Receive Date: 20091029
  Receipt Date: 20091016
  Transmission Date: 20100525
  Serious: Yes (Other)
  Sender: FDA-Public Use
  Company Number: AU-PFIZER INC-2009277278

PATIENT

DRUGS (2)
  1. CHAMPIX [Suspect]
     Indication: SMOKING CESSATION THERAPY
     Dosage: 0.5 MG, SINGLE
     Route: 048
     Dates: start: 20090929, end: 20090930
  2. XANAX [Concomitant]
     Indication: ANXIETY
     Dosage: UNK
     Route: 048

REACTIONS (6)
  - ANXIETY [None]
  - DARK CIRCLES UNDER EYES [None]
  - EYE SWELLING [None]
  - EYES SUNKEN [None]
  - HYPERSENSITIVITY [None]
  - MALAISE [None]
